FAERS Safety Report 17741747 (Version 3)
Quarter: 2021Q2

REPORT INFORMATION
  Report Type: Report from Study
  Country: US (occurrence: US)
  Receive Date: 20200504
  Receipt Date: 20210407
  Transmission Date: 20210716
  Serious: Yes (Life-Threatening, Hospitalization, Disabling, Other)
  Sender: FDA-Public Use
  Company Number: US-SA-2017SA091760

PATIENT
  Age: 42 Year
  Sex: Female

DRUGS (2)
  1. ALEMTUZUMAB [Suspect]
     Active Substance: ALEMTUZUMAB
     Dosage: 12 MG,QD
     Route: 041
     Dates: start: 20170522, end: 20170525
  2. ALEMTUZUMAB [Suspect]
     Active Substance: ALEMTUZUMAB
     Indication: MULTIPLE SCLEROSIS
     Dosage: 12 MG,QD
     Route: 041
     Dates: start: 20170515, end: 20170515

REACTIONS (37)
  - Heart rate increased [Recovered/Resolved]
  - Rash macular [Recovered/Resolved]
  - Somnolence [Not Recovered/Not Resolved]
  - Wound [Not Recovered/Not Resolved]
  - Dysgraphia [Not Recovered/Not Resolved]
  - Surgery [Unknown]
  - Sunburn [Recovered/Resolved]
  - Infection [Not Recovered/Not Resolved]
  - Pulmonary embolism [Recovered/Resolved]
  - Movement disorder [Recovered/Resolved]
  - Arthralgia [Recovered/Resolved]
  - Bone abscess [Not Recovered/Not Resolved]
  - Rash [Not Recovered/Not Resolved]
  - Osteomyelitis [Not Recovered/Not Resolved]
  - Pain [Recovered/Resolved]
  - Urine analysis abnormal [Not Recovered/Not Resolved]
  - Urticaria [Not Recovered/Not Resolved]
  - Decubitus ulcer [Not Recovered/Not Resolved]
  - Confusional state [Not Recovered/Not Resolved]
  - Contusion [Not Recovered/Not Resolved]
  - Speech disorder [Not Recovered/Not Resolved]
  - Hospitalisation [Unknown]
  - Lung disorder [Not Recovered/Not Resolved]
  - Skin lesion [Recovered/Resolved]
  - Dysphonia [Not Recovered/Not Resolved]
  - Malaise [Not Recovered/Not Resolved]
  - Skin exfoliation [Recovered/Resolved]
  - Bladder catheterisation [Not Recovered/Not Resolved]
  - Lethargy [Not Recovered/Not Resolved]
  - Asthenia [Not Recovered/Not Resolved]
  - Diaphragmatic disorder [Not Recovered/Not Resolved]
  - Immune system disorder [Not Recovered/Not Resolved]
  - Urticaria [Recovered/Resolved]
  - Blood pressure abnormal [Recovered/Resolved]
  - Multiple sclerosis [Not Recovered/Not Resolved]
  - Body temperature increased [Recovered/Resolved]
  - Skin irritation [Recovered/Resolved]

NARRATIVE: CASE EVENT DATE: 20170515
